FAERS Safety Report 5977537-7 (Version None)
Quarter: 2008Q4

REPORT INFORMATION
  Report Type: 
  Country: None (occurrence: None)
  Receive Date: 20081201
  Receipt Date: 20081201
  Transmission Date: 20090506
  Serious: Yes (Other)
  Sender: FDA-Public Use
  Company Number: None

PATIENT
  Age: 84 Year
  Sex: Male
  Weight: 74.8435 kg

DRUGS (1)
  1. ALDARA [Suspect]
     Indication: SKIN CANCER
     Dosage: .25 GM ONCE DAILY EPIDURAL
     Route: 008
     Dates: start: 20080723, end: 20080910

REACTIONS (1)
  - VISUAL ACUITY REDUCED [None]
